FAERS Safety Report 25879073 (Version 2)
Quarter: 2025Q4

REPORT INFORMATION
  Report Type: Other
  Country: US (occurrence: US)
  Receive Date: 20251003
  Receipt Date: 20251009
  Transmission Date: 20260118
  Serious: Yes (Other)
  Sender: TRAVERE THERAPEUTICS
  Company Number: US-TRAVERE-2025TVT01795

PATIENT
  Age: 34 Year
  Sex: Male

DRUGS (1)
  1. FILSPARI [Suspect]
     Active Substance: SPARSENTAN
     Indication: IgA nephropathy
     Route: 048
     Dates: start: 20250506

REACTIONS (7)
  - Glomerular filtration rate decreased [Recovering/Resolving]
  - Oedema peripheral [Unknown]
  - Oedema [Unknown]
  - Amnesia [Unknown]
  - Chromaturia [Unknown]
  - Fatigue [Unknown]
  - Dyspnoea [Unknown]
